FAERS Safety Report 12055221 (Version 2)
Quarter: 2016Q1

REPORT INFORMATION
  Report Type: Spontaneous
  Country: JP (occurrence: JP)
  Receive Date: 20160209
  Receipt Date: 20160229
  Transmission Date: 20160526
  Serious: Yes (Life-Threatening, Hospitalization)
  Sender: FDA-Public Use
  Company Number: JP-SA-2016SA022371

PATIENT
  Age: 81 Year
  Sex: Male

DRUGS (4)
  1. FUROSEMIDE. [Suspect]
     Active Substance: FUROSEMIDE
     Indication: POLYURIA
     Route: 065
  2. SPIRONOLACTONE. [Suspect]
     Active Substance: SPIRONOLACTONE
     Indication: POLYURIA
     Route: 065
  3. AMLODIPINE/IRBESARTAN [Suspect]
     Active Substance: AMLODIPINE BESYLATE\IRBESARTAN
     Indication: HYPERTENSION
     Route: 065
  4. CANDESARTAN CILEXETIL. [Suspect]
     Active Substance: CANDESARTAN CILEXETIL
     Indication: HYPERTENSION
     Route: 065

REACTIONS (10)
  - Depressed level of consciousness [Recovering/Resolving]
  - Coma scale abnormal [Recovering/Resolving]
  - Tachypnoea [Recovering/Resolving]
  - Asthenia [Recovering/Resolving]
  - Metabolic acidosis [Recovering/Resolving]
  - Renal impairment [None]
  - Electrocardiogram abnormal [Recovering/Resolving]
  - Hyperkalaemia [Recovering/Resolving]
  - Haemodialysis [None]
  - Gait disturbance [Recovering/Resolving]
